FAERS Safety Report 17908827 (Version 1)
Quarter: 2020Q2

REPORT INFORMATION
  Report Type: Spontaneous
  Country: JP (occurrence: JP)
  Receive Date: 20200617
  Receipt Date: 20200617
  Transmission Date: 20200714
  Serious: Yes (Other)
  Sender: FDA-Public Use
  Company Number: NVSC2020JP166156

PATIENT
  Age: 2 Year
  Sex: Male

DRUGS (1)
  1. ETANERCEPT [Suspect]
     Active Substance: ETANERCEPT
     Indication: NECROSIS
     Dosage: 5 MG, TIW
     Route: 065

REACTIONS (1)
  - Pyoderma gangrenosum [Unknown]
